FAERS Safety Report 13537993 (Version 1)
Quarter: 2017Q2

REPORT INFORMATION
  Report Type: Spontaneous
  Country: FI (occurrence: FI)
  Receive Date: 20170511
  Receipt Date: 20170511
  Transmission Date: 20170830
  Serious: Yes (Death, Other)
  Sender: FDA-Public Use
  Company Number: FI-009507513-1705FIN004772

PATIENT

DRUGS (4)
  1. CARBOPLATIN. [Suspect]
     Active Substance: CARBOPLATIN
     Dosage: 200 MG/M2, D1-D2
     Route: 013
  2. RITUXIMAB [Suspect]
     Active Substance: RITUXIMAB
     Dosage: 375 MG/M2, D0
     Route: 042
  3. DEXAMETHASONE. [Suspect]
     Active Substance: DEXAMETHASONE
     Indication: CENTRAL NERVOUS SYSTEM LYMPHOMA
     Dosage: 6 MG X4-6 ON DAY 2 -10
     Route: 048
  4. CYTARABINE. [Suspect]
     Active Substance: CYTARABINE
     Dosage: 400 MG, D14
     Route: 037

REACTIONS (2)
  - Neutropenic sepsis [Fatal]
  - Adverse event [Fatal]
